FAERS Safety Report 6242198-9 (Version None)
Quarter: 2009Q2

REPORT INFORMATION
  Report Type: 
  Country: None (occurrence: None)
  Receive Date: 20090624
  Receipt Date: 20090619
  Transmission Date: 20091009
  Serious: Yes (Death)
  Sender: FDA-Public Use
  Company Number: JP-BRISTOL-MYERS SQUIBB COMPANY-14661805

PATIENT
  Age: 70 Year
  Sex: Male
  Weight: 33 kg

DRUGS (3)
  1. AMIKACIN SULFATE [Suspect]
     Route: 042
  2. IMIPENEM [Suspect]
     Route: 042
  3. CLARITHROMYCIN [Suspect]
     Route: 048

REACTIONS (1)
  - MYCOBACTERIAL INFECTION [None]
